FAERS Safety Report 4932110-4 (Version None)
Quarter: 2006Q1

REPORT INFORMATION
  Report Type: 
  Country: None (occurrence: None)
  Receive Date: 20060303
  Receipt Date: 20060220
  Transmission Date: 20060701
  Serious: Yes (Hospitalization)
  Sender: FDA-Public Use
  Company Number: FR-ROCHE-437461

PATIENT
  Age: 5 Year
  Sex: Female
  Weight: 15 kg

DRUGS (4)
  1. CLONAZEPAM [Suspect]
     Indication: EPILEPSY
     Route: 048
  2. CLONAZEPAM [Suspect]
     Dosage: DOSAGE DECREASED IN RESPONSE TO THE EVENTS.
     Route: 048
  3. EPITOMAX [Concomitant]
     Indication: EPILEPSY
  4. LAMICTAL [Concomitant]
     Indication: EPILEPSY

REACTIONS (4)
  - COORDINATION ABNORMAL [None]
  - HAEMOLYTIC URAEMIC SYNDROME [None]
  - HYPOTENSION [None]
  - SOMNOLENCE [None]
